FAERS Safety Report 11027754 (Version 2)
Quarter: 2015Q2

REPORT INFORMATION
  Report Type: Spontaneous
  Country: US (occurrence: US)
  Receive Date: 20150414
  Receipt Date: 20150525
  Transmission Date: 20150821
  Serious: No
  Sender: FDA-Public Use
  Company Number: US-JNJFOC-20130713885

PATIENT
  Age: 25 Year
  Sex: Female
  Weight: 52.16 kg

DRUGS (3)
  1. SPRINTEC [Suspect]
     Active Substance: ETHINYL ESTRADIOL\NORGESTIMATE
     Indication: OVARIAN CYST
     Route: 065
  2. ORTHO TRI CYCLEN LO [Suspect]
     Active Substance: ETHINYL ESTRADIOL\NORGESTIMATE
     Indication: OVARIAN CYST
     Route: 048
  3. TRINESSA [Suspect]
     Active Substance: ETHINYL ESTRADIOL\NORGESTIMATE
     Indication: OVARIAN CYST
     Route: 048
     Dates: start: 20130429, end: 201305

REACTIONS (5)
  - Nausea [Recovered/Resolved]
  - Feeding disorder [Recovered/Resolved]
  - Decreased appetite [Not Recovered/Not Resolved]
  - Activities of daily living impaired [Recovered/Resolved]
  - Product use issue [Recovered/Resolved]

NARRATIVE: CASE EVENT DATE: 2013
